FAERS Safety Report 5662040-4 (Version None)
Quarter: 2008Q1

REPORT INFORMATION
  Report Type: 
  Country: None (occurrence: None)
  Receive Date: 20080312
  Receipt Date: 20080228
  Transmission Date: 20080703
  Serious: Yes (Hospitalization)
  Sender: FDA-Public Use
  Company Number: DE-ELI_LILLY_AND_COMPANY-DE200803001124

PATIENT
  Sex: Male

DRUGS (2)
  1. STRATTERA [Suspect]
     Dosage: 36 MG, DAILY (1/D)
     Route: 048
     Dates: start: 20060101
  2. VIANI [Concomitant]
     Indication: ASTHMA
     Dosage: UNK, UNKNOWN

REACTIONS (2)
  - INFLUENZA [None]
  - TACHYCARDIA [None]
